FAERS Safety Report 16304801 (Version 2)
Quarter: 2019Q2

REPORT INFORMATION
  Report Type: Spontaneous
  Country: US (occurrence: US)
  Receive Date: 20190513
  Receipt Date: 20190603
  Transmission Date: 20190711
  Serious: Yes (Hospitalization)
  Sender: FDA-Public Use
  Company Number: US-ACTELION-A-NJ2019-190193

PATIENT
  Sex: Female
  Weight: 62.59 kg

DRUGS (3)
  1. OPSUMIT [Suspect]
     Active Substance: MACITENTAN
     Indication: PULMONARY HYPERTENSION
     Dosage: 10 MG, QD
     Route: 048
  2. AMLODIPINE [Concomitant]
     Active Substance: AMLODIPINE BESYLATE
  3. ADCIRCA [Concomitant]
     Active Substance: TADALAFIL

REACTIONS (6)
  - Urinary tract infection [Unknown]
  - Blood pressure increased [Unknown]
  - Rehabilitation therapy [Unknown]
  - Atrial fibrillation [Unknown]
  - Dyspnoea [Unknown]
  - Malaise [Unknown]
